FAERS Safety Report 7148767-6 (Version None)
Quarter: 2010Q4

REPORT INFORMATION
  Report Type: 
  Country: None (occurrence: None)
  Receive Date: 20101209
  Receipt Date: 20101207
  Transmission Date: 20110411
  Serious: Yes (Hospitalization)
  Sender: FDA-Public Use
  Company Number: FR-ROCHE-746757

PATIENT
  Age: 14 Year
  Sex: Male

DRUGS (4)
  1. RIVOTRIL [Suspect]
     Route: 065
     Dates: start: 20100601, end: 20101107
  2. NEURONTIN [Suspect]
     Route: 065
     Dates: start: 20100601, end: 20101107
  3. PARACETAMOL [Suspect]
     Route: 065
     Dates: start: 20100601, end: 20101108
  4. TAVANIC [Suspect]
     Indication: PNEUMONIA
     Route: 065
     Dates: start: 20101028, end: 20101105

REACTIONS (1)
  - PANCREATITIS ACUTE [None]
